FAERS Safety Report 8563615-5 (Version None)
Quarter: 2012Q3

REPORT INFORMATION
  Report Type: 
  Country: None (occurrence: None)
  Receive Date: 20120803
  Receipt Date: 20120724
  Transmission Date: 20120928
  Serious: Yes (Hospitalization)
  Sender: FDA-Public Use
  Company Number: FR-BIOGENIDEC-2012BI000704

PATIENT
  Age: 43 Year
  Sex: Female

DRUGS (3)
  1. TYSABRI [Suspect]
     Indication: MULTIPLE SCLEROSIS
     Route: 042
     Dates: start: 20071018
  2. ANTITHROMBOTIC [Concomitant]
     Indication: THROMBOSIS PROPHYLAXIS
     Dates: start: 20110701, end: 20110701
  3. TRIPHASIL-21 [Concomitant]

REACTIONS (1)
  - UTERINE LEIOMYOMA [None]
